FAERS Safety Report 4645279-6 (Version None)
Quarter: 2005Q2

REPORT INFORMATION
  Report Type: 
  Country: None (occurrence: None)
  Receive Date: 20050331
  Receipt Date: 20050224
  Transmission Date: 20051028
  Serious: No
  Sender: FDA-Public Use
  Company Number: 05P-163-0291872

PATIENT
  Age: 65 Year
  Sex: Female

DRUGS (11)
  1. HUMIRA [Suspect]
     Indication: RHEUMATOID ARTHRITIS
     Dosage: 40 MG, 1 IN 2 WK, SUBCUTANEOUS
     Route: 058
     Dates: start: 20030901
  2. METHOTREXTATE SODIUM [Concomitant]
  3. FOLIC ACID [Concomitant]
  4. AMLODIPINE BESYLATE [Concomitant]
  5. ALPRAZOLAM [Concomitant]
  6. DIOVAN [Concomitant]
  7. CITALOPRAM HYDROBROMIDE [Concomitant]
  8. QUETIAPINE [Concomitant]
  9. LORACET [Concomitant]
  10. VALPROATE SODIUM [Concomitant]
  11. MIRAPEX [Concomitant]

REACTIONS (1)
  - CATARACT [None]
